FAERS Safety Report 9825316 (Version 1)
Quarter: 2013Q4

REPORT INFORMATION
  Report Type: Spontaneous
  Country: US (occurrence: None)
  Receive Date: 20131028
  Receipt Date: 20131028
  Transmission Date: 20140711
  Serious: Yes (Other)
  Sender: FDA-Public Use
  Company Number: 2013US002110

PATIENT
  Age: 76 Year
  Sex: Female
  Weight: 78 kg

DRUGS (10)
  1. ICLUSIG (PONATINIB) TABLET, 45MG [Suspect]
     Indication: ACUTE LYMPHOCYTIC LEUKAEMIA
     Route: 048
     Dates: start: 20130523
  2. LISINOPRIL (LISINOPRIL) [Concomitant]
  3. ALBUTEROL (ALBUTEROL) [Concomitant]
  4. VITAMIN D (VITAMIN D) [Concomitant]
  5. K-DUR (POTASSIUM CHLORIDE0 [Concomitant]
  6. NAPROSYN (NAPROXEN) [Concomitant]
  7. NEURONTIN (GABAPENTIN) [Concomitant]
  8. ZOLOFT (SERTRALINE HYDROCHLORIDE) [Concomitant]
  9. OXYCODONE (OXYCODONE) [Concomitant]
  10. SYNTHROID (LEVOTHYROXINE SODIUM) [Concomitant]

REACTIONS (3)
  - Muscular weakness [None]
  - Somnolence [None]
  - Weight decreased [None]
